FAERS Safety Report 7059869-7 (Version None)
Quarter: 2010Q4

REPORT INFORMATION
  Report Type: 
  Country: None (occurrence: None)
  Receive Date: 20101025
  Receipt Date: 20101012
  Transmission Date: 20110411
  Serious: Yes (Hospitalization)
  Sender: FDA-Public Use
  Company Number: PHHY2010FR69335

PATIENT
  Sex: Male
  Weight: 145 kg

DRUGS (10)
  1. VOLTAREN [Interacting]
     Indication: PAIN
     Dosage: 75MG/3ML, 1DF BID
     Dates: start: 20100415, end: 20100422
  2. GLUCOPHAGE [Suspect]
     Indication: DIABETES MELLITUS
     Dosage: 1000 MG, 1DF TID
     Dates: end: 20100423
  3. ASPEGIC 1000 [Interacting]
     Dosage: 300 MG, QD
     Dates: end: 20100423
  4. OLMETEC [Interacting]
     Indication: HYPERTENSION
     Dosage: 40 MG, 1 DF QD
     Dates: end: 20100423
  5. ALDALIX [Suspect]
     Indication: HYPERTENSION
     Dosage: 50 MG/20 MG, 1 DF QD
     Dates: end: 20100424
  6. COLCHIMAX [Suspect]
     Dosage: 1 DF, QD
  7. COLCHIMAX [Suspect]
     Dosage: 2 DF DAILY (2 MG DAILY)
     Dates: start: 20100412, end: 20100422
  8. FUROSEMIDE [Interacting]
     Indication: HYPERTENSION
     Dosage: 40 MG, 1 DF QD
     Dates: end: 20100427
  9. HUMALOG [Concomitant]
     Indication: DIABETES MELLITUS
  10. LANTUS [Concomitant]
     Indication: DIABETES MELLITUS

REACTIONS (13)
  - ANAEMIA [None]
  - DIALYSIS [None]
  - DIARRHOEA [None]
  - GAIT DISTURBANCE [None]
  - GLOMERULAR FILTRATION RATE DECREASED [None]
  - HYPERKALAEMIA [None]
  - HYPOAESTHESIA [None]
  - MOBILITY DECREASED [None]
  - NAUSEA [None]
  - NEUROPATHY PERIPHERAL [None]
  - RENAL FAILURE ACUTE [None]
  - RENAL FAILURE CHRONIC [None]
  - VOMITING [None]
